FAERS Safety Report 10746014 (Version 3)
Quarter: 2015Q2

REPORT INFORMATION
  Report Type: Report from Study
  Country: JP (occurrence: JP)
  Receive Date: 20150128
  Receipt Date: 20150611
  Transmission Date: 20150821
  Serious: Yes (Death, Life-Threatening, Other)
  Sender: FDA-Public Use
  Company Number: JP-ALEXION PHARMACEUTICALS INC.-A201500239

PATIENT

DRUGS (18)
  1. TEICOPLANIN [Concomitant]
     Active Substance: TEICOPLANIN
     Indication: PNEUMONIA
     Dosage: 200 MG, QOD
     Route: 042
     Dates: start: 20141127, end: 20141224
  2. SOLIRIS [Suspect]
     Active Substance: ECULIZUMAB
     Indication: HAEMOLYTIC URAEMIC SYNDROME
     Dosage: 900 MG, QW
     Route: 042
     Dates: start: 20141114, end: 20141205
  3. SOLU-MEDROL [Suspect]
     Active Substance: METHYLPREDNISOLONE SODIUM SUCCINATE
     Dosage: 30 MG, QD
     Route: 042
     Dates: start: 20141120, end: 20141122
  4. NICARDIPINE [Concomitant]
     Active Substance: NICARDIPINE
     Indication: HYPERTENSION
     Dosage: 50 MG, QD
     Route: 042
     Dates: start: 20141110, end: 20141112
  5. KENKETSU GLOVENIN I NICHIYAKU [Concomitant]
     Indication: PNEUMONIA
     Dosage: 5000 MG, QD
     Route: 042
     Dates: start: 20141126, end: 20141128
  6. HUMAN SERUM ALBUMIN [Concomitant]
     Active Substance: ALBUMIN (HUMAN)
     Indication: HYPOALBUMINAEMIA
     Dosage: 50 ML, BID
     Route: 042
     Dates: start: 20141128, end: 20141129
  7. ZOSYN [Concomitant]
     Active Substance: PIPERACILLIN SODIUM\TAZOBACTAM SODIUM
     Dosage: 4.5 G, BID
     Route: 042
     Dates: start: 20141126, end: 20141225
  8. ZOSYN [Concomitant]
     Active Substance: PIPERACILLIN SODIUM\TAZOBACTAM SODIUM
     Indication: PNEUMONIA
     Dosage: 4.5 G, TID
     Route: 042
     Dates: start: 20141104, end: 20141114
  9. SOLU-MEDROL [Suspect]
     Active Substance: METHYLPREDNISOLONE SODIUM SUCCINATE
     Dosage: 40 MG, QD
     Route: 042
     Dates: start: 20141114, end: 20141119
  10. SOLU-MEDROL [Suspect]
     Active Substance: METHYLPREDNISOLONE SODIUM SUCCINATE
     Dosage: UNK
  11. DENOSINE                           /00090105/ [Concomitant]
     Indication: CYTOMEGALOVIRUS INFECTION
     Dosage: 60 MG, TIW
     Route: 042
     Dates: start: 20141204, end: 20141224
  12. RECOMODULIN [Concomitant]
     Active Substance: THROMBOMODULIN ALFA
     Indication: INTERSTITIAL LUNG DISEASE
     Dosage: 16640 IU, QD
     Route: 042
     Dates: start: 20141104, end: 20141109
  13. SOLU-MEDROL [Suspect]
     Active Substance: METHYLPREDNISOLONE SODIUM SUCCINATE
     Indication: INTERSTITIAL LUNG DISEASE
     Dosage: 500 MG, BID
     Route: 042
     Dates: start: 20141104, end: 20141107
  14. CRAVIT [Concomitant]
     Active Substance: LEVOFLOXACIN
     Indication: PNEUMONIA
     Dosage: 250 MG, QOD
     Route: 042
     Dates: start: 20141128, end: 20150105
  15. SOLU-MEDROL [Suspect]
     Active Substance: METHYLPREDNISOLONE SODIUM SUCCINATE
     Dosage: 500 MG, BID
     Route: 042
     Dates: start: 20141111, end: 20141113
  16. MEROPEN                            /01250501/ [Concomitant]
     Active Substance: MEROPENEM
     Indication: PNEUMONIA
     Dosage: 0.5 G, QD
     Route: 042
     Dates: start: 20141115, end: 20141125
  17. SHINBIT [Concomitant]
     Indication: ATRIAL FLUTTER
     Dosage: 240 MG, QD
     Route: 042
     Dates: start: 20141117, end: 20141121
  18. KENKETU GLOVENIN-I [Concomitant]
     Active Substance: HUMAN IMMUNOGLOBULIN G
     Indication: DERMATOMYOSITIS
     Dosage: 17500 MG, QD
     Route: 042
     Dates: start: 20141212, end: 20141216

REACTIONS (6)
  - Condition aggravated [Fatal]
  - Interstitial lung disease [Recovering/Resolving]
  - Thrombotic microangiopathy [Fatal]
  - Renal impairment [Unknown]
  - Pulmonary mycosis [Not Recovered/Not Resolved]
  - Platelet count decreased [Unknown]

NARRATIVE: CASE EVENT DATE: 20111123
